FAERS Safety Report 22542230 (Version 1)
Quarter: 2023Q2

REPORT INFORMATION
  Report Type: Spontaneous
  Country: DE (occurrence: DE)
  Receive Date: 20230609
  Receipt Date: 20230609
  Transmission Date: 20230721
  Serious: Yes (Death, Hospitalization, Other)
  Sender: FDA-Public Use
  Company Number: DE-002147023-NVSC2023DE089176

PATIENT
  Age: 2 Day

DRUGS (2)
  1. OXYTOCIN [Suspect]
     Active Substance: OXYTOCIN
     Indication: Foetal exposure during pregnancy
     Dosage: UNK (MATERNAL DOSE: UNKNOWN)
     Route: 064
     Dates: start: 20171119
  2. AMPICILLIN [Suspect]
     Active Substance: AMPICILLIN
     Indication: Foetal exposure during pregnancy
     Dosage: UNK (MATERNAL DOSE: UNKNOWN, AT 4 HOURS INTERVAL)
     Route: 064
     Dates: start: 20171118

REACTIONS (13)
  - Death neonatal [Fatal]
  - Renal impairment neonatal [Unknown]
  - Septic shock [Unknown]
  - Multiple organ dysfunction syndrome [Unknown]
  - Neonatal respiratory failure [Unknown]
  - Late metabolic acidosis of newborn [Unknown]
  - Hypothermia neonatal [Unknown]
  - Neonatal hypotension [Unknown]
  - Cyanosis neonatal [Unknown]
  - Bradycardia neonatal [Unknown]
  - Tachycardia foetal [Unknown]
  - Bacteraemia [Unknown]
  - Foetal exposure during delivery [Unknown]

NARRATIVE: CASE EVENT DATE: 20171101
